FAERS Safety Report 5194383-5 (Version None)
Quarter: 2006Q4

REPORT INFORMATION
  Report Type: 
  Country: None (occurrence: None)
  Receive Date: 20061228
  Receipt Date: 20061219
  Transmission Date: 20070319
  Serious: Yes (Other)
  Sender: FDA-Public Use
  Company Number: US-PFIZER INC-2006155047

PATIENT
  Sex: Female
  Weight: 51.3 kg

DRUGS (2)
  1. DEPO-PROVERA [Suspect]
     Indication: CONTRACEPTION
     Dosage: FREQ:1ST INJECTION
     Route: 030
     Dates: start: 19980101, end: 19980101
  2. DEPO-PROVERA [Suspect]
     Dosage: FREQ:LAST INJECTION
     Route: 030
     Dates: start: 20050101, end: 20050101

REACTIONS (8)
  - ALOPECIA [None]
  - AMENORRHOEA [None]
  - BONE DENSITY DECREASED [None]
  - INSOMNIA [None]
  - LOSS OF LIBIDO [None]
  - STRESS [None]
  - TOOTH DISORDER [None]
  - WEIGHT INCREASED [None]
